FAERS Safety Report 23629743 (Version 5)
Quarter: 2025Q2

REPORT INFORMATION
  Report Type: Report from Study
  Country: US (occurrence: US)
  Receive Date: 20240314
  Receipt Date: 20250624
  Transmission Date: 20250717
  Serious: Yes (Other)
  Sender: ABBVIE
  Company Number: US-ABBVIE-5676593

PATIENT
  Age: 61 Year
  Sex: Female
  Weight: 70 kg

DRUGS (2)
  1. SKYRIZI [Suspect]
     Active Substance: RISANKIZUMAB-RZAA
     Indication: Psoriasis
     Route: 058
  2. SKYRIZI [Suspect]
     Active Substance: RISANKIZUMAB-RZAA
     Route: 058
     Dates: start: 20230203

REACTIONS (11)
  - Vulval cancer [Recovering/Resolving]
  - Glycosylated haemoglobin abnormal [Unknown]
  - Psoriasis [Unknown]
  - Asthenia [Unknown]
  - Osteoarthritis [Unknown]
  - Vulval cancer [Recovering/Resolving]
  - Malaise [Unknown]
  - Joint swelling [Unknown]
  - Back pain [Unknown]
  - Body mass index increased [Unknown]
  - Papilloma viral infection [Unknown]

NARRATIVE: CASE EVENT DATE: 20240101
